FAERS Safety Report 12528127 (Version 2)
Quarter: 2016Q4

REPORT INFORMATION
  Report Type: Spontaneous
  Country: FR (occurrence: FR)
  Receive Date: 20160705
  Receipt Date: 20161104
  Transmission Date: 20170207
  Serious: Yes (Hospitalization)
  Sender: FDA-Public Use
  Company Number: FR-PFIZER INC-2016319344

PATIENT
  Age: 68 Year
  Sex: Female

DRUGS (35)
  1. AMLOR [Suspect]
     Active Substance: AMLODIPINE BESYLATE
     Dosage: UNK
     Dates: start: 20160605, end: 20160609
  2. INNOVAIR [Concomitant]
     Active Substance: BECLOMETHASONE DIPROPIONATE\FORMOTEROL
     Dosage: 2 DF, 2X/DAY
  3. WYSTAMM [Concomitant]
     Active Substance: RUPATADINE FUMARATE
     Dosage: UNK, 1X/DAY
  4. ALPRESS [Concomitant]
     Active Substance: PRAZOSIN
     Dosage: 2.5 MG, 1X/DAY
  5. SEROPRAM [Concomitant]
     Active Substance: CITALOPRAM HYDROBROMIDE
     Dosage: 20 MG, 1X/DAY
  6. NIMBEX [Concomitant]
     Active Substance: CISATRACURIUM BESYLATE
     Dosage: UNK
     Dates: start: 20160525, end: 20160604
  7. BRICANYL [Concomitant]
     Active Substance: TERBUTALINE SULFATE
     Dosage: UNK
     Dates: start: 20160524
  8. LOVENOX [Suspect]
     Active Substance: ENOXAPARIN SODIUM
     Dosage: UNK
     Route: 058
     Dates: start: 20160525, end: 20160608
  9. LOVENOX [Suspect]
     Active Substance: ENOXAPARIN SODIUM
     Dosage: UNK
     Route: 058
     Dates: start: 20160614, end: 20160617
  10. KETAMINE PANPHARMA [Suspect]
     Active Substance: KETAMINE
     Dosage: UNK
     Route: 042
     Dates: start: 20160604, end: 20160609
  11. LECTIL [Concomitant]
     Active Substance: BETAHISTINE HYDROCHLORIDE
     Dosage: 24 MG, 2X/DAY
  12. EUPRESSYL /00631801/ [Concomitant]
     Active Substance: URAPIDIL
     Indication: PULMONARY OEDEMA
     Dosage: UNK
     Dates: start: 20160527
  13. CALCIPARINE [Concomitant]
     Active Substance: HEPARIN CALCIUM
     Dosage: UNK
     Dates: start: 20160617
  14. DEBRIDAT /00465201/ [Concomitant]
     Active Substance: TRIMEBUTINE MALEATE
     Dosage: 200 MG, 1X/DAY
  15. KETAMINE PANPHARMA [Suspect]
     Active Substance: KETAMINE
     Dosage: UNK
     Route: 042
     Dates: start: 20160525
  16. BECONASE AQ [Concomitant]
     Active Substance: BECLOMETHASONE DIPROPIONATE MONOHYDRATE
     Dosage: 2 DF, 2X/DAY
  17. UVEDOSE [Concomitant]
     Active Substance: CHOLECALCIFEROL
     Dosage: 1 DF, EVERY 3 MONTHS
  18. TANGANIL /01593101/ [Concomitant]
     Indication: DIZZINESS
     Dosage: 1-2 THRICE DAILY, AS NEEDED
  19. AZANTAC [Concomitant]
     Active Substance: RANITIDINE HYDROCHLORIDE
     Dosage: UNK
     Dates: end: 20160608
  20. LASILIX /00032601/ [Concomitant]
     Active Substance: FUROSEMIDE
     Indication: PULMONARY OEDEMA
     Dosage: UNK
     Dates: start: 20160529
  21. ATROVENT [Concomitant]
     Active Substance: IPRATROPIUM BROMIDE
     Dosage: UNK
     Dates: start: 20160524
  22. SOLU-MEDROL [Concomitant]
     Active Substance: METHYLPREDNISOLONE SODIUM SUCCINATE
     Dosage: 1 MG/KG, UNK
     Route: 042
     Dates: start: 20160524
  23. HYPNOVEL /00634101/ [Suspect]
     Active Substance: MIDAZOLAM\MIDAZOLAM HYDROCHLORIDE
     Dosage: UNK
     Route: 042
     Dates: start: 20160525, end: 20160609
  24. SINGULAIR [Concomitant]
     Active Substance: MONTELUKAST SODIUM
     Dosage: 10 MG, 1X/DAY
  25. EUPANTOL [Concomitant]
     Active Substance: PANTOPRAZOLE SODIUM
     Dosage: UNK
     Dates: start: 20160525, end: 20160530
  26. DIPRIVAN [Suspect]
     Active Substance: PROPOFOL
     Dosage: UNK
     Route: 042
     Dates: start: 20160605, end: 20160609
  27. EUPANTOL [Concomitant]
     Active Substance: PANTOPRAZOLE SODIUM
     Dosage: UNK
     Dates: start: 20160614
  28. CALCIPARINE [Concomitant]
     Active Substance: HEPARIN CALCIUM
     Dosage: UNK
     Dates: start: 20160608, end: 20160614
  29. SIMVASTATIN. [Concomitant]
     Active Substance: SIMVASTATIN
     Dosage: 10 MG, 1X/DAY
  30. EPHEDRINE. [Concomitant]
     Active Substance: EPHEDRINE
     Dosage: UNK
     Dates: start: 20160525
  31. ZYVOXID [Suspect]
     Active Substance: LINEZOLID
     Dosage: UNK
     Route: 042
     Dates: start: 20160605, end: 20160609
  32. SUFENTA [Suspect]
     Active Substance: SUFENTANIL CITRATE
     Dosage: UNK
     Route: 042
     Dates: start: 20160525, end: 20160609
  33. PIPERACILLIN/ TAZOBACTAM KABI [Suspect]
     Active Substance: PIPERACILLIN SODIUM\TAZOBACTAM SODIUM
     Dosage: UNK
     Route: 042
     Dates: start: 20160605, end: 20160609
  34. INEXIUM /01479302/ [Concomitant]
     Active Substance: ESOMEPRAZOLE MAGNESIUM
     Dosage: 20 MG, 1X/DAY
  35. CELOCURINE [Concomitant]
     Active Substance: SUCCINYLCHOLINE CHLORIDE
     Dosage: UNK
     Dates: start: 20160525

REACTIONS (3)
  - Transaminases increased [Recovering/Resolving]
  - Hepatocellular injury [Recovering/Resolving]
  - Gamma-glutamyltransferase increased [Recovering/Resolving]

NARRATIVE: CASE EVENT DATE: 20160609
